FAERS Safety Report 8578804-3 (Version None)
Quarter: 2012Q3

REPORT INFORMATION
  Report Type: 
  Country: None (occurrence: None)
  Receive Date: 20120808
  Receipt Date: 20120731
  Transmission Date: 20120928
  Serious: Yes (Hospitalization)
  Sender: FDA-Public Use
  Company Number: US-VERTEX PHARMACEUTICALS INC.-AE-2012-006512

PATIENT
  Sex: Female

DRUGS (5)
  1. INCIVEK [Suspect]
     Indication: HEPATITIS C
     Route: 048
     Dates: start: 20120331, end: 20120623
  2. RIBAVIRIN [Concomitant]
     Indication: HEPATITIS C
     Dates: start: 20120304
  3. PEGASYS [Concomitant]
  4. PEGASYS [Concomitant]
     Indication: HEPATITIS C
     Dates: start: 20120304
  5. RIBAVIRIN [Concomitant]

REACTIONS (5)
  - WHITE BLOOD CELL COUNT DECREASED [None]
  - RASH GENERALISED [None]
  - DEHYDRATION [None]
  - HAEMOGLOBIN DECREASED [None]
  - FATIGUE [None]
